FAERS Safety Report 13795289 (Version 1)
Quarter: 2017Q3

REPORT INFORMATION
  Report Type: Spontaneous
  Country: US (occurrence: US)
  Receive Date: 20170726
  Receipt Date: 20170726
  Transmission Date: 20171127
  Serious: No
  Sender: FDA-Public Use
  Company Number: US-IPSEN BIOPHARMACEUTICALS, INC.-2017-00390

PATIENT
  Sex: Male

DRUGS (4)
  1. SOMATULINE [Suspect]
     Active Substance: LANREOTIDE ACETATE
     Indication: ACROMEGALY
     Dosage: 120 MG
     Route: 030
     Dates: start: 20170117
  2. SOMATULINE [Suspect]
     Active Substance: LANREOTIDE ACETATE
     Indication: GIGANTISM
  3. AMOXICILLIN. [Concomitant]
     Active Substance: AMOXICILLIN
  4. CABERGOLINE. [Concomitant]
     Active Substance: CABERGOLINE

REACTIONS (3)
  - Diarrhoea [Recovered/Resolved]
  - Dyspepsia [Unknown]
  - Incorrect route of drug administration [Unknown]

NARRATIVE: CASE EVENT DATE: 2017
